FAERS Safety Report 8568309-8 (Version None)
Quarter: 2012Q3

REPORT INFORMATION
  Report Type: 
  Country: None (occurrence: None)
  Receive Date: 20120803
  Receipt Date: 20120109
  Transmission Date: 20120928
  Serious: No
  Sender: FDA-Public Use
  Company Number: US-ABBOTT-12P-163-0891303-00

PATIENT
  Sex: Female
  Weight: 74.91 kg

DRUGS (6)
  1. PRREVASTAIN [Concomitant]
     Indication: PRODUCT USED FOR UNKNOWN INDICATION
  2. PREVACHL [Concomitant]
     Indication: PRODUCT USED FOR UNKNOWN INDICATION
  3. LOW DOSE ENTERIC COATED ASPIRIN [Concomitant]
     Indication: PRODUCT USED FOR UNKNOWN INDICATION
     Dosage: 30 MINUTES BEFORE DOSE OF NIASPAN COATED
  4. NIASPAN [Suspect]
     Indication: PRODUCT USED FOR UNKNOWN INDICATION
     Dosage: AT BEDTIME
     Dates: start: 20100101, end: 20110601
  5. NIASPAN [Suspect]
     Dosage: EARLY IN THE DAY
     Dates: start: 20111201
  6. PROTONIX [Concomitant]
     Indication: PRODUCT USED FOR UNKNOWN INDICATION

REACTIONS (1)
  - FLUSHING [None]
